FAERS Safety Report 25997821 (Version 1)
Quarter: 2025Q4

REPORT INFORMATION
  Report Type: Spontaneous
  Country: EU (occurrence: EU)
  Receive Date: 20251105
  Receipt Date: 20251105
  Transmission Date: 20260117
  Serious: Yes (Other)
  Sender: SUNOVION
  Company Number: EU-DCGMA-25206033

PATIENT
  Age: 28 Year
  Sex: Female
  Weight: 69 kg

DRUGS (2)
  1. ESTRADIOL\NORETHINDRONE ACETATE\RELUGOLIX [Suspect]
     Active Substance: ESTRADIOL\NORETHINDRONE ACETATE\RELUGOLIX
     Indication: Endometriosis
     Dosage: 40 MG/1MG/0.5 MG
     Route: 048
  2. NAPROXEN [Concomitant]
     Active Substance: NAPROXEN
     Route: 048

REACTIONS (2)
  - Oesophageal candidiasis [Recovered/Resolved]
  - Dyspepsia [Recovered/Resolved]

NARRATIVE: CASE EVENT DATE: 20250210
